FAERS Safety Report 16981925 (Version 1)
Quarter: 2019Q4

REPORT INFORMATION
  Report Type: Report from Study
  Country: JP (occurrence: JP)
  Receive Date: 20191101
  Receipt Date: 20191101
  Transmission Date: 20200122
  Serious: Yes (Hospitalization, Disabling, Other)
  Sender: FDA-Public Use
  Company Number: JP-B.I. PHARMACEUTICALS,INC./RIDGEFIELD-2019-NB-001715

PATIENT
  Age: 75 Year
  Sex: Female
  Weight: 50.5 kg

DRUGS (1)
  1. PRAZAXA [Suspect]
     Active Substance: DABIGATRAN ETEXILATE MESYLATE
     Indication: PRODUCT USED FOR UNKNOWN INDICATION
     Route: 048
     Dates: start: 20190402, end: 20190402

REACTIONS (2)
  - Subdural haematoma [Recovered/Resolved with Sequelae]
  - Gastrointestinal necrosis [Unknown]

NARRATIVE: CASE EVENT DATE: 20190402
